FAERS Safety Report 14228576 (Version 1)
Quarter: 2017Q4

REPORT INFORMATION
  Report Type: Report from Study
  Country: None (occurrence: US)
  Receive Date: 20171128
  Receipt Date: 20171128
  Transmission Date: 20180321
  Serious: Yes (Other)
  Sender: FDA-Public Use
  Company Number: US-ABBVIE-17K-163-2096149-00

PATIENT
  Sex: Female

DRUGS (1)
  1. HUMIRA [Suspect]
     Active Substance: ADALIMUMAB
     Indication: PSORIASIS
     Route: 058
     Dates: start: 20140321

REACTIONS (4)
  - Complication associated with device [Unknown]
  - Hysterectomy [Recovered/Resolved]
  - Abdominal discomfort [Unknown]
  - Ureteric repair [Recovering/Resolving]

NARRATIVE: CASE EVENT DATE: 2017
